FAERS Safety Report 8384100-X (Version None)
Quarter: 2012Q2

REPORT INFORMATION
  Report Type: 
  Country: None (occurrence: None)
  Receive Date: 20120524
  Receipt Date: 20120518
  Transmission Date: 20120825
  Serious: Yes (Hospitalization, Other)
  Sender: FDA-Public Use
  Company Number: NZ-PFIZER INC-2012121367

PATIENT
  Age: 51 Year
  Sex: Male
  Weight: 75 kg

DRUGS (6)
  1. METOPROLOL TARTRATE [Suspect]
  2. CITALOPRAM HYDROBROMIDE [Suspect]
  3. QUETIAPINE FUMARATE [Suspect]
     Dosage: UNK
  4. ASPIRIN [Suspect]
     Dosage: UNK
  5. AMITRIPTYLINE HCL [Suspect]
     Dosage: EXCESS OF 43 MG/KG (} 65 X 50-MG TABLETS)
  6. QUINAPRIL HCL [Suspect]

REACTIONS (14)
  - CONVULSION [None]
  - PNEUMONIA ASPIRATION [None]
  - OVERDOSE [None]
  - CARDIOTOXICITY [None]
  - AGITATION [None]
  - BLOOD GLUCOSE INCREASED [None]
  - POISONING DELIBERATE [None]
  - TOXICITY TO VARIOUS AGENTS [None]
  - BODY TEMPERATURE INCREASED [None]
  - MYDRIASIS [None]
  - TACHYCARDIA [None]
  - BLOOD PRESSURE DECREASED [None]
  - ELECTROCARDIOGRAM QRS COMPLEX PROLONGED [None]
  - HAEMODYNAMIC INSTABILITY [None]
